FAERS Safety Report 8344005-7 (Version None)
Quarter: 2012Q2

REPORT INFORMATION
  Report Type: 
  Country: None (occurrence: None)
  Receive Date: 20120508
  Receipt Date: 20101119
  Transmission Date: 20120825
  Serious: No
  Sender: FDA-Public Use
  Company Number: US-TEVA-2010006066

PATIENT
  Sex: Male

DRUGS (2)
  1. TREANDA [Suspect]
     Indication: B-CELL LYMPHOMA
     Route: 042
     Dates: start: 20101118
  2. RITUXAN [Concomitant]
     Indication: B-CELL LYMPHOMA
     Dates: start: 20101118

REACTIONS (1)
  - PYREXIA [None]
